FAERS Safety Report 15659614 (Version 1)
Quarter: 2018Q4

REPORT INFORMATION
  Report Type: Other
  Country: ES (occurrence: ES)
  Receive Date: 20181127
  Receipt Date: 20181127
  Transmission Date: 20190205
  Serious: Yes (Disabling, Other)
  Sender: FDA-Public Use
  Company Number: ES-APOTEX-2018AP025092

PATIENT
  Age: 40 Year
  Sex: Female

DRUGS (10)
  1. IBANDRONATE SODIUM. [Concomitant]
     Active Substance: IBANDRONATE SODIUM
     Indication: POLYMYOSITIS
  2. CALCIUM [Concomitant]
     Active Substance: CALCIUM
     Indication: POLYMYOSITIS
  3. CICLOSPORIN [Concomitant]
     Active Substance: CYCLOSPORINE
     Indication: POLYMYOSITIS
  4. METHYLPREDNISOLONE. [Interacting]
     Active Substance: METHYLPREDNISOLONE
     Indication: ANTISYNTHETASE SYNDROME
  5. ESCITALOPRAM [Concomitant]
     Active Substance: ESCITALOPRAM OXALATE
     Indication: DEPRESSION
     Dosage: 10 MG, QD
     Route: 065
     Dates: start: 20110401
  6. IBANDRONATE SODIUM. [Concomitant]
     Active Substance: IBANDRONATE SODIUM
     Indication: ANTISYNTHETASE SYNDROME
     Dosage: 150 MG, QD
     Route: 065
     Dates: start: 20110701
  7. CICLOSPORIN [Concomitant]
     Active Substance: CYCLOSPORINE
     Indication: ANTISYNTHETASE SYNDROME
     Dosage: 100 MG, QD
     Route: 065
     Dates: start: 20110701
  8. LEVOFLOXACIN. [Suspect]
     Active Substance: LEVOFLOXACIN
     Indication: UPPER RESPIRATORY TRACT INFECTION
     Dosage: 500 MG, QD
     Route: 065
  9. METHYLPREDNISOLONE. [Interacting]
     Active Substance: METHYLPREDNISOLONE
     Indication: POLYMYOSITIS
     Dosage: 20 MG, QD
     Route: 065
     Dates: start: 20110701
  10. CALCIUM [Concomitant]
     Active Substance: CALCIUM
     Indication: ANTISYNTHETASE SYNDROME
     Dosage: 2 OT, UNK
     Route: 065
     Dates: start: 20110701

REACTIONS (6)
  - Gait inability [Recovering/Resolving]
  - Tendon rupture [Recovering/Resolving]
  - Haemarthrosis [Recovering/Resolving]
  - Swelling [Recovering/Resolving]
  - Tendon disorder [Recovering/Resolving]
  - Tendon pain [Recovering/Resolving]
